FAERS Safety Report 23210870 (Version 1)
Quarter: 2023Q4

REPORT INFORMATION
  Report Type: Spontaneous
  Country: FR (occurrence: FR)
  Receive Date: 20231121
  Receipt Date: 20231121
  Transmission Date: 20240109
  Serious: Yes (Hospitalization)
  Sender: FDA-Public Use
  Company Number: FR-CHEPLA-2023014048

PATIENT
  Age: 48 Year
  Sex: Female

DRUGS (10)
  1. MEDROL [Suspect]
     Active Substance: METHYLPREDNISOLONE
     Dosage: 1 DF, 2X/DAY MORNING AND IN THE EVENING TO REPLACE PREDNISONE NOS
     Dates: start: 20181004
  2. PREDNISOLONE METASULFOBENZOATE SODIUM [Suspect]
     Active Substance: PREDNISOLONE SODIUM METAZOATE
     Dosage: 4 DF, 1X/DAY
  3. PREDNISONE [Suspect]
     Active Substance: PREDNISONE
     Indication: Brain oedema
     Dosage: 30 MG, 1X/DAY
  4. PREDNISONE [Suspect]
     Active Substance: PREDNISONE
     Dosage: 40 MG, 1X/DAY
  5. PREDNISONE [Suspect]
     Active Substance: PREDNISONE
     Dosage: 40 MG, 1X/DAY IN MORNING
     Dates: end: 20181004
  6. PREDNISONE [Suspect]
     Active Substance: PREDNISONE
     Dosage: 90 MG, SINGLE DOSE
     Route: 048
     Dates: start: 20180726
  7. DAFALGAN [Concomitant]
     Active Substance: ACETAMINOPHEN
     Dosage: UNK
  8. KEPPRA [Concomitant]
     Active Substance: LEVETIRACETAM
     Dosage: 1 DF, 2X/DAY IN THE MORNING AND IN THE EVENING
     Route: 048
     Dates: start: 20181004
  9. KEPPRA [Concomitant]
     Active Substance: LEVETIRACETAM
     Dosage: 100 MG, 2X/DAY IN THE MORNING AND IN THE EVENING
     Route: 048
  10. TROPICAMIDE [Concomitant]
     Active Substance: TROPICAMIDE
     Dosage: 2 DROP, 1X/DAY DROP SINGLE DOSE IN THE TWO EYES FOR 1 DAYS
     Route: 047
     Dates: start: 20180726

REACTIONS (3)
  - Back pain [Unknown]
  - Asthenia [Unknown]
  - Osteoporosis [Unknown]

NARRATIVE: CASE EVENT DATE: 20190606
